FAERS Safety Report 15548728 (Version 5)
Quarter: 2021Q4

REPORT INFORMATION
  Report Type: Report from Study
  Country: ES (occurrence: ES)
  Receive Date: 20181025
  Receipt Date: 20211216
  Transmission Date: 20220303
  Serious: Yes (Hospitalization, Other)
  Sender: FDA-Public Use
  Company Number: ES-BRISTOL-MYERS SQUIBB COMPANY-BMS-2018-098876

PATIENT
  Age: 52 Year
  Sex: Male
  Weight: 93.7 kg

DRUGS (12)
  1. PLACEBO [Suspect]
     Active Substance: UNSPECIFIED INGREDIENT
     Indication: Malignant melanoma
     Dosage: 1 MG/KG, Q6WK
     Route: 042
     Dates: start: 20180117, end: 20180301
  2. NIVOLUMAB [Suspect]
     Active Substance: NIVOLUMAB
     Indication: Malignant melanoma
     Dosage: 480 MILLIGRAM, Q4WK
     Route: 042
     Dates: start: 20180117, end: 20180328
  3. PREDNISONE [Concomitant]
     Active Substance: PREDNISONE
     Indication: Adverse event
     Dosage: 30 MG, UNK
     Route: 065
     Dates: start: 201808, end: 201808
  4. PREDNISONE [Concomitant]
     Active Substance: PREDNISONE
     Dosage: 120 UNK, UNK
     Route: 065
     Dates: start: 20180427, end: 201805
  5. PREDNISONE [Concomitant]
     Active Substance: PREDNISONE
     Dosage: 5 UNK, UNK
     Route: 065
     Dates: start: 20180926, end: 20181011
  6. PREDNISONE [Concomitant]
     Active Substance: PREDNISONE
     Dosage: 30 UNK, UNK
     Route: 065
     Dates: start: 20181018
  7. METAMIZOLE [Concomitant]
     Active Substance: METAMIZOLE
     Indication: Adverse event
     Dosage: UNK
     Route: 065
     Dates: start: 20180328
  8. DEXKETOPROFEN [Concomitant]
     Active Substance: DEXKETOPROFEN
     Indication: Adverse event
     Dosage: UNK
     Route: 065
     Dates: start: 20180408
  9. OMEPRAZOLE [Concomitant]
     Active Substance: OMEPRAZOLE
     Indication: Adverse event
     Dosage: UNK
     Route: 065
     Dates: start: 20180418
  10. LEVOTHYROXINE [Concomitant]
     Active Substance: LEVOTHYROXINE
     Indication: Adverse event
     Dosage: UNK
     Route: 065
     Dates: start: 20180624
  11. IBUPROFEN [Concomitant]
     Active Substance: IBUPROFEN
     Indication: Product used for unknown indication
     Dosage: UNK
     Route: 065
     Dates: start: 20180905
  12. OXYCODONE [Concomitant]
     Active Substance: OXYCODONE
     Indication: Product used for unknown indication
     Dosage: UNK
     Route: 065
     Dates: start: 20180905

REACTIONS (1)
  - Polyarthritis [Recovered/Resolved]

NARRATIVE: CASE EVENT DATE: 20181017
